FAERS Safety Report 19034082 (Version 1)
Quarter: 2021Q1

REPORT INFORMATION
  Report Type: Report from Study
  Country: US (occurrence: US)
  Receive Date: 20210319
  Receipt Date: 20210319
  Transmission Date: 20210420
  Serious: Yes (Hospitalization, Other)
  Sender: FDA-Public Use
  Company Number: US-BAYER-2021-107915

PATIENT
  Age: 74 Year
  Sex: Male
  Weight: 88.44 kg

DRUGS (4)
  1. XARELTO [Concomitant]
     Active Substance: RIVAROXABAN
  2. ADEMPAS [Suspect]
     Active Substance: RIOCIGUAT
     Indication: PULMONARY ARTERIAL HYPERTENSION
     Dosage: UNK
     Dates: start: 20210120
  3. AMLODIPINE [Concomitant]
     Active Substance: AMLODIPINE BESYLATE
  4. ADEMPAS [Suspect]
     Active Substance: RIOCIGUAT
     Indication: PULMONARY ARTERIAL HYPERTENSION
     Dosage: 1 MG, TID
     Route: 048

REACTIONS (8)
  - Diarrhoea [None]
  - Gastric disorder [None]
  - Medical procedure [None]
  - Peripheral swelling [Recovered/Resolved]
  - Irritable bowel syndrome [None]
  - Anxiety [None]
  - Abdominal pain [None]
  - Joint swelling [Recovered/Resolved]

NARRATIVE: CASE EVENT DATE: 2021
